FAERS Safety Report 7717568-X (Version None)
Quarter: 2011Q3

REPORT INFORMATION
  Report Type: 
  Country: None (occurrence: None)
  Receive Date: 20110830
  Receipt Date: 20110817
  Transmission Date: 20111222
  Serious: No
  Sender: FDA-Public Use
  Company Number: US-B.I. PHARMACEUTICALS,INC./RIDGEFIELD-2011-BP-20226BP

PATIENT
  Sex: Male

DRUGS (4)
  1. DIOVAN [Concomitant]
     Indication: CARDIAC DISORDER
     Route: 048
  2. VYTORIN [Concomitant]
     Indication: BLOOD CHOLESTEROL INCREASED
     Route: 048
  3. FLOVENT [Concomitant]
     Indication: PULMONARY FUNCTION TEST DECREASED
     Route: 055
  4. PRADAXA [Suspect]
     Indication: ATRIAL FIBRILLATION
     Dosage: 300 MG
     Route: 048
     Dates: start: 20110717

REACTIONS (2)
  - ABDOMINAL DISCOMFORT [None]
  - TENDON PAIN [None]
